FAERS Safety Report 8764625 (Version 1)
Quarter: 2012Q4

REPORT INFORMATION
  Report Type: 
  Country: US (occurrence: US)
  Receive Date: 20120831
  Receipt Date: 20120831
  Transmission Date: 20130627
  Serious: Yes (Hospitalization, Other)
  Sender: FDA-Public Use
  Company Number: US-009507513-1206USA01369

PATIENT

DRUGS (2)
  1. FOSAMAX [Suspect]
     Indication: OSTEOPOROSIS PROPHYLAXIS
     Dosage: 70 mg, UNK
     Route: 048
     Dates: start: 2002, end: 2011
  2. FOSAMAX [Suspect]

REACTIONS (22)
  - Bone graft [Unknown]
  - Epilepsy [Unknown]
  - Influenza [Unknown]
  - Osteonecrosis of jaw [Unknown]
  - Tooth extraction [Unknown]
  - Artificial crown procedure [Unknown]
  - Artificial crown procedure [Unknown]
  - Exostosis [Unknown]
  - Endodontic procedure [Unknown]
  - Hypertension [Unknown]
  - Blood cholesterol increased [Unknown]
  - Anxiety [Unknown]
  - Jaw disorder [Unknown]
  - Debridement [Unknown]
  - Exostosis [Unknown]
  - Impaired healing [Unknown]
  - Purulence [Unknown]
  - Exostosis [Unknown]
  - Increased tendency to bruise [Unknown]
  - Arthritis [Unknown]
  - Medical device implantation [Unknown]
  - Anaemia [Unknown]
